FAERS Safety Report 21251910 (Version 1)
Quarter: 2022Q3

REPORT INFORMATION
  Report Type: Report from Study
  Country: GB (occurrence: GB)
  Receive Date: 20220825
  Receipt Date: 20220825
  Transmission Date: 20221027
  Serious: Yes (Death, Other)
  Sender: FDA-Public Use
  Company Number: GB-BRISTOL-MYERS SQUIBB COMPANY-2022-095319

PATIENT
  Age: 81 Year
  Sex: Female
  Weight: 69.9 kg

DRUGS (9)
  1. LENADEX [Suspect]
     Active Substance: DEXAMETHASONE ACETATE
     Indication: Plasma cell myeloma
     Dosage: 20 MILLIGRAM?DURATION TEXT : CYCLE 4
     Route: 065
     Dates: start: 20170614, end: 20170705
  2. LENADEX [Suspect]
     Active Substance: DEXAMETHASONE ACETATE
     Indication: Plasma cell myeloma refractory
     Dosage: FREQUENCY TEXT: NOT PROVIDED?20 MILLIGRAM
     Route: 065
     Dates: start: 20170517
  3. LENADEX [Suspect]
     Active Substance: DEXAMETHASONE ACETATE
     Dosage: FREQUENCY TEXT: NOT PROVIDED?20 MILLIGRAM
     Route: 065
     Dates: start: 20170705
  4. LENADEX [Suspect]
     Active Substance: DEXAMETHASONE ACETATE
     Dosage: 20 MILLIGRAM?DURATION TEXT : CYCLE 1
     Route: 065
     Dates: start: 20170322, end: 20170411
  5. LENADEX [Suspect]
     Active Substance: DEXAMETHASONE ACETATE
     Dosage: FREQUENCY TEXT: NOT PROVIDED?20 MILLIGRAM
     Route: 065
     Dates: start: 20170412
  6. LENADEX [Suspect]
     Active Substance: DEXAMETHASONE ACETATE
     Dosage: FREQUENCY TEXT: NOT PROVIDED?20 MILLIGRAM
     Route: 065
     Dates: start: 20170607
  7. POMALYST [Suspect]
     Active Substance: POMALIDOMIDE
     Indication: Plasma cell myeloma refractory
     Dosage: FREQUENCY TEXT: NOT PROVIDED?DURATION TEXT : CYCLE 1
     Route: 048
     Dates: start: 20170322, end: 20170411
  8. POMALYST [Suspect]
     Active Substance: POMALIDOMIDE
     Dosage: FREQUENCY TEXT: NOT PROVIDED
     Route: 048
     Dates: start: 20170517, end: 20170606
  9. POMALYST [Suspect]
     Active Substance: POMALIDOMIDE
     Dosage: FREQUENCY TEXT: NOT PROVIDED?DURATION TEXT : CYCLE 1
     Route: 048
     Dates: start: 20170614, end: 20170704

REACTIONS (1)
  - Death [Fatal]

NARRATIVE: CASE EVENT DATE: 20220602
